FAERS Safety Report 24066836 (Version 1)
Quarter: 2024Q3

REPORT INFORMATION
  Report Type: Spontaneous
  Country: CN (occurrence: CN)
  Receive Date: 20240709
  Receipt Date: 20240709
  Transmission Date: 20241017
  Serious: Yes (Other)
  Sender: NOVO NORDISK
  Company Number: CN-NOVOPROD-1241650

PATIENT
  Age: 31 Year
  Sex: Female

DRUGS (12)
  1. LEVEMIR [Suspect]
     Active Substance: INSULIN DETEMIR
     Indication: Gestational diabetes
     Dosage: UNK
  2. NOVOLIN N [Suspect]
     Active Substance: INSULIN HUMAN
     Indication: Gestational diabetes
     Dosage: UNK
  3. NOVOLIN N [Suspect]
     Active Substance: INSULIN HUMAN
     Dosage: UNK
     Route: 042
  4. NOVOLIN N [Suspect]
     Active Substance: INSULIN HUMAN
     Dosage: UNK
     Route: 058
  5. NOVOLIN N [Suspect]
     Active Substance: INSULIN HUMAN
     Dosage: UNK
     Route: 058
  6. INSULIN ASPART [Suspect]
     Active Substance: INSULIN ASPART
     Indication: Product used for unknown indication
     Dosage: UNK
  7. NOVOLIN R [Suspect]
     Active Substance: INSULIN HUMAN
     Indication: Product used for unknown indication
     Dosage: UNK
  8. HUMULIN R [Suspect]
     Active Substance: INSULIN HUMAN
     Indication: Product used for unknown indication
     Dosage: UNK
  9. INSULIN LISPRO [Suspect]
     Active Substance: INSULIN LISPRO
     Indication: Product used for unknown indication
     Dosage: UNK
  10. HUMULIN N [Suspect]
     Active Substance: INSULIN HUMAN
     Indication: Product used for unknown indication
     Dosage: UNK
  11. INSULIN GLARGINE [Suspect]
     Active Substance: INSULIN GLARGINE
     Indication: Product used for unknown indication
     Dosage: UNK
  12. INSULIN GLULISINE [Suspect]
     Active Substance: INSULIN GLULISINE
     Indication: Product used for unknown indication
     Dosage: UNK

REACTIONS (5)
  - Diabetic ketoacidosis [Unknown]
  - Premature delivery [Unknown]
  - Injection site urticaria [Unknown]
  - Hypersensitivity [Unknown]
  - Maternal exposure during pregnancy [Recovered/Resolved]
